FAERS Safety Report 19256968 (Version 2)
Quarter: 2021Q2

REPORT INFORMATION
  Report Type: Spontaneous
  Country: US (occurrence: US)
  Receive Date: 20210513
  Receipt Date: 20210608
  Transmission Date: 20210717
  Serious: Yes (Hospitalization)
  Sender: FDA-Public Use
  Company Number: US-PFIZER INC-2021487428

PATIENT
  Age: 25 Year
  Sex: Female
  Weight: 61.22 kg

DRUGS (2)
  1. LIDOCAINE HCL [Suspect]
     Active Substance: LIDOCAINE HYDROCHLORIDE
     Indication: ARTHRALGIA
     Dosage: 1?2 CC^S OF 0.1 %
     Dates: start: 20210405
  2. SARAPIN [Concomitant]
     Active Substance: SARRACENIA PURPUREA
     Dosage: UNK
     Dates: start: 20210405, end: 20210405

REACTIONS (2)
  - Pain [Recovered/Resolved]
  - Swelling [Recovered/Resolved]

NARRATIVE: CASE EVENT DATE: 20210405
